FAERS Safety Report 8379015-7 (Version None)
Quarter: 2012Q2

REPORT INFORMATION
  Report Type: 
  Country: None (occurrence: None)
  Receive Date: 20120522
  Receipt Date: 20120522
  Transmission Date: 20120825
  Serious: Yes (Other)
  Sender: FDA-Public Use
  Company Number: None

PATIENT
  Sex: Female
  Weight: 48.9885 kg

DRUGS (6)
  1. METOPROLOL TARTRATE [Concomitant]
  2. PLAQUENIL [Concomitant]
  3. CRESTOR [Concomitant]
  4. BONIVA [Suspect]
     Indication: OSTEOPOROSIS
     Dosage: 1 TABLET ONCE A MONTH
  5. ULTRAM [Concomitant]
  6. EVISTA [Concomitant]

REACTIONS (3)
  - PAIN [None]
  - PAIN IN EXTREMITY [None]
  - FEMUR FRACTURE [None]
